FAERS Safety Report 5045422-3 (Version None)
Quarter: 2006Q3

REPORT INFORMATION
  Report Type: 
  Country: None (occurrence: None)
  Receive Date: 20060707
  Receipt Date: 20060626
  Transmission Date: 20061208
  Serious: Yes (Hospitalization)
  Sender: FDA-Public Use
  Company Number: FR-NOVOPROD-254596

PATIENT
  Sex: Male

DRUGS (1)
  1. GLUCAGEN [Suspect]
     Indication: DIABETES MELLITUS

REACTIONS (2)
  - HEADACHE [None]
  - NAUSEA [None]
